FAERS Safety Report 13016234 (Version 2)
Quarter: 2017Q1

REPORT INFORMATION
  Report Type: Spontaneous
  Country: US (occurrence: US)
  Receive Date: 20161212
  Receipt Date: 20170303
  Transmission Date: 20170428
  Serious: Yes (Hospitalization)
  Sender: FDA-Public Use
  Company Number: US-JNJFOC-20161115377

PATIENT
  Age: 67 Year
  Sex: Male
  Weight: 84.01 kg

DRUGS (34)
  1. ANAGRELIDE [Suspect]
     Active Substance: ANAGRELIDE
     Indication: MYELOPROLIFERATIVE NEOPLASM
     Route: 048
     Dates: start: 20141125, end: 20141201
  2. ANAGRELIDE [Suspect]
     Active Substance: ANAGRELIDE
     Indication: MYELOPROLIFERATIVE NEOPLASM
     Route: 048
     Dates: start: 20141007, end: 20141020
  3. ANAGRELIDE [Suspect]
     Active Substance: ANAGRELIDE
     Indication: MYELOPROLIFERATIVE NEOPLASM
     Route: 048
     Dates: start: 20151011, end: 20151109
  4. ANAGRELIDE [Suspect]
     Active Substance: ANAGRELIDE
     Indication: MYELOPROLIFERATIVE NEOPLASM
     Route: 048
     Dates: start: 20141224, end: 20150203
  5. IRBESARTAN. [Concomitant]
     Active Substance: IRBESARTAN
     Indication: HYPERTENSION
     Route: 065
     Dates: start: 20141222
  6. LEVOTHYROXINE SODIUM. [Concomitant]
     Active Substance: LEVOTHYROXINE SODIUM
     Indication: HYPOTHYROIDISM
     Route: 065
     Dates: start: 20000615
  7. DOCUSATE SODIUM. [Concomitant]
     Active Substance: DOCUSATE SODIUM
     Route: 065
  8. POTASSIUM CHLORIDE. [Concomitant]
     Active Substance: POTASSIUM CHLORIDE
     Route: 065
  9. XARELTO [Suspect]
     Active Substance: RIVAROXABAN
     Indication: CEREBROVASCULAR ACCIDENT PROPHYLAXIS
     Route: 048
     Dates: start: 20140702, end: 20151009
  10. ANAGRELIDE [Suspect]
     Active Substance: ANAGRELIDE
     Indication: MYELOPROLIFERATIVE NEOPLASM
     Route: 048
     Dates: start: 20151110, end: 20160307
  11. ANAGRELIDE [Suspect]
     Active Substance: ANAGRELIDE
     Indication: MYELOPROLIFERATIVE NEOPLASM
     Route: 048
     Dates: start: 20141021, end: 20141104
  12. IRBESARTAN. [Concomitant]
     Active Substance: IRBESARTAN
     Indication: HYPERTENSION
     Route: 065
     Dates: start: 20090601
  13. ANAGRELIDE [Suspect]
     Active Substance: ANAGRELIDE
     Indication: MYELOPROLIFERATIVE NEOPLASM
     Route: 048
     Dates: start: 20141125, end: 20141201
  14. ANAGRELIDE [Suspect]
     Active Substance: ANAGRELIDE
     Indication: MYELOPROLIFERATIVE NEOPLASM
     Route: 048
     Dates: start: 20141217, end: 20141223
  15. DILTIAZEM HYDROCHLORIDE. [Concomitant]
     Active Substance: DILTIAZEM HYDROCHLORIDE
     Indication: HYPERTENSION
     Route: 065
     Dates: start: 20111212
  16. MUCINEX [Concomitant]
     Active Substance: GUAIFENESIN
     Route: 065
     Dates: start: 20090615
  17. PNEUMOCOCCAL VACCINE POLYVALENT NOS [Concomitant]
     Active Substance: PNEUMOCOCCAL VACCINE POLYVALENT
     Route: 065
  18. PANTOPRAZOLE [Concomitant]
     Active Substance: PANTOPRAZOLE SODIUM
     Route: 065
  19. GUAIFENESIN. [Concomitant]
     Active Substance: GUAIFENESIN
     Indication: COUGH
     Route: 065
  20. XARELTO [Suspect]
     Active Substance: RIVAROXABAN
     Indication: ATRIAL FIBRILLATION
     Route: 048
     Dates: start: 20140702, end: 20151009
  21. ASPIRIN. [Suspect]
     Active Substance: ASPIRIN
     Indication: CARDIOVASCULAR EVENT PROPHYLAXIS
     Route: 065
     Dates: start: 20040615
  22. ANAGRELIDE [Suspect]
     Active Substance: ANAGRELIDE
     Indication: MYELOPROLIFERATIVE NEOPLASM
     Route: 048
     Dates: start: 20150204, end: 20150303
  23. ANAGRELIDE [Suspect]
     Active Substance: ANAGRELIDE
     Indication: MYELOPROLIFERATIVE NEOPLASM
     Route: 048
     Dates: start: 20150304, end: 20150416
  24. ANAGRELIDE [Suspect]
     Active Substance: ANAGRELIDE
     Indication: MYELOPROLIFERATIVE NEOPLASM
     Route: 048
     Dates: start: 20141105, end: 20141124
  25. ANAGRELIDE [Suspect]
     Active Substance: ANAGRELIDE
     Indication: MYELOPROLIFERATIVE NEOPLASM
     Route: 048
     Dates: start: 20150417, end: 20151009
  26. FERROUS SULFATE. [Concomitant]
     Active Substance: FERROUS SULFATE
     Route: 065
     Dates: start: 20141217
  27. CRESTOR [Concomitant]
     Active Substance: ROSUVASTATIN CALCIUM
     Indication: HYPERLIPIDAEMIA
     Route: 065
     Dates: start: 20140427, end: 20141002
  28. CRESTOR [Concomitant]
     Active Substance: ROSUVASTATIN CALCIUM
     Indication: HYPERLIPIDAEMIA
     Route: 065
     Dates: start: 20141003
  29. ANAGRELIDE [Suspect]
     Active Substance: ANAGRELIDE
     Indication: MYELOPROLIFERATIVE NEOPLASM
     Route: 048
     Dates: start: 20141224, end: 20150203
  30. IRON [Concomitant]
     Active Substance: IRON
     Route: 065
     Dates: start: 20150910
  31. SENNA [Concomitant]
     Active Substance: SENNA LEAF\SENNOSIDES\SENNOSIDES A AND B
     Route: 065
     Dates: start: 20141202
  32. ANAGRELIDE [Suspect]
     Active Substance: ANAGRELIDE
     Indication: MYELOPROLIFERATIVE NEOPLASM
     Route: 048
     Dates: start: 20141202, end: 20141216
  33. ANAGRELIDE [Suspect]
     Active Substance: ANAGRELIDE
     Indication: MYELOPROLIFERATIVE NEOPLASM
     Route: 048
     Dates: start: 20150304, end: 20150416
  34. CYANOCOBALAMIN-TANNIN COMPLEX [Concomitant]
     Route: 065

REACTIONS (1)
  - Epistaxis [Recovering/Resolving]

NARRATIVE: CASE EVENT DATE: 20151009
